FAERS Safety Report 10553800 (Version 1)
Quarter: 2014Q4

REPORT INFORMATION
  Report Type: Spontaneous
  Country: US (occurrence: US)
  Receive Date: 20141030
  Receipt Date: 20141030
  Transmission Date: 20150529
  Serious: No
  Sender: FDA-Public Use
  Company Number: US-BAYER-2014-160038

PATIENT
  Sex: Female

DRUGS (1)
  1. ALEVE [Suspect]
     Active Substance: NAPROXEN SODIUM
     Indication: ARTHRITIS
     Dosage: 2 DF, SOME TIMES 2 IN THE MORNING AND 2 IN THE NIGHT
     Route: 048
     Dates: start: 1994

REACTIONS (2)
  - Incorrect drug administration duration [None]
  - Extra dose administered [None]
